FAERS Safety Report 8321358-7 (Version None)
Quarter: 2012Q2

REPORT INFORMATION
  Report Type: 
  Country: None (occurrence: None)
  Receive Date: 20120430
  Receipt Date: 20090922
  Transmission Date: 20120825
  Serious: No
  Sender: FDA-Public Use
  Company Number: US-TEVA-2009010563

PATIENT
  Sex: Male
  Weight: 104.42 kg

DRUGS (9)
  1. XANAX [Concomitant]
  2. LIPITOR [Concomitant]
  3. JANUVIA [Concomitant]
  4. LITHIUM CARBONATE [Concomitant]
  5. CEPHALEXIN [Concomitant]
  6. LAMICTAL [Concomitant]
  7. NUVIGIL [Suspect]
     Indication: SLEEP APNOEA SYNDROME
     Route: 048
     Dates: start: 20090919
  8. CYMBALTA [Concomitant]
  9. SYNTHROID [Concomitant]

REACTIONS (3)
  - ENERGY INCREASED [None]
  - PARAESTHESIA [None]
  - DYSGEUSIA [None]
